FAERS Safety Report 4645149-3 (Version None)
Quarter: 2005Q2

REPORT INFORMATION
  Report Type: 
  Country: None (occurrence: None)
  Receive Date: 20050426
  Receipt Date: 20050214
  Transmission Date: 20051028
  Serious: Yes (Hospitalization, Other)
  Sender: FDA-Public Use
  Company Number: FR-BRISTOL-MYERS SQUIBB COMPANY-12865127

PATIENT
  Age: 82 Year
  Sex: Male
  Weight: 84 kg

DRUGS (3)
  1. HYDREA [Suspect]
     Indication: POLYCYTHAEMIA VERA
     Route: 048
     Dates: start: 19990101, end: 20040901
  2. AMLOR [Concomitant]
     Indication: HYPERTENSION
     Route: 048
  3. STILNOX [Concomitant]
     Indication: INSOMNIA
     Route: 048

REACTIONS (10)
  - ACTINIC KERATOSIS [None]
  - DERMATITIS EXFOLIATIVE [None]
  - GENITAL ULCERATION [None]
  - KAPOSI'S SARCOMA [None]
  - LIP NEOPLASM MALIGNANT STAGE UNSPECIFIED [None]
  - MOUTH ULCERATION [None]
  - MUCOSAL INFLAMMATION [None]
  - PRURITUS [None]
  - RASH [None]
  - TREATMENT RELATED SECONDARY MALIGNANCY [None]
